FAERS Safety Report 6474176-9 (Version None)
Quarter: 2009Q4

REPORT INFORMATION
  Report Type: 
  Country: None (occurrence: None)
  Receive Date: 20091204
  Receipt Date: 20091123
  Transmission Date: 20100525
  Serious: Yes (Hospitalization)
  Sender: FDA-Public Use
  Company Number: PHHY2009MX49030

PATIENT
  Age: 80 Year
  Sex: Female

DRUGS (6)
  1. ACLASTA [Suspect]
     Indication: OSTEOPOROSIS
     Dosage: 1 AMPOULE 5 MG/100 ML PER YEAR
     Route: 042
     Dates: start: 20071101
  2. ACLASTA [Suspect]
     Dosage: 1 AMPOULE 5 MG/100 ML PER YEAR
     Route: 042
     Dates: start: 20081001
  3. ACLASTA [Suspect]
     Dosage: 1 AMPOULE 5 MG/100 ML PER YEAR
     Route: 042
     Dates: start: 20091012
  4. ATACAND [Concomitant]
  5. VENALOT [Concomitant]
  6. ASPIRIN [Concomitant]

REACTIONS (1)
  - CATARACT OPERATION [None]
